FAERS Safety Report 19060615 (Version 2)
Quarter: 2021Q2

REPORT INFORMATION
  Report Type: Spontaneous
  Country: ES (occurrence: ES)
  Receive Date: 20210326
  Receipt Date: 20210408
  Transmission Date: 20210717
  Serious: Yes (Other)
  Sender: FDA-Public Use
  Company Number: ES-LUPIN PHARMACEUTICALS INC.-2021-03709

PATIENT
  Age: 77 Year
  Sex: Female

DRUGS (2)
  1. SALINE [SODIUM CHLORIDE] [Concomitant]
     Active Substance: SODIUM CHLORIDE
     Indication: VEHICLE SOLUTION USE
     Dosage: UNK A SINGLE DILUTION OF 750MG CEFUROXIME WAS PERFORMED IN 6ML OF BALANCED SODIUM CHLORIDE
  2. CEFUROXIME. [Suspect]
     Active Substance: CEFUROXIME
     Indication: PROPHYLAXIS
     Dosage: 12.5 MILLIGRAM  THE STANDARD PROTOCOL FOR DILUTION OF CEFUROXIME FOR INTRACAMERAL USE INCLUDED INITI

REACTIONS (4)
  - Corneal oedema [Recovered/Resolved]
  - Product preparation issue [Unknown]
  - Accidental overdose [Unknown]
  - Anterior chamber inflammation [Recovered/Resolved]
